FAERS Safety Report 7542759-0 (Version None)
Quarter: 2011Q2

REPORT INFORMATION
  Report Type: 
  Country: None (occurrence: None)
  Receive Date: 20110613
  Receipt Date: 20110606
  Transmission Date: 20111010
  Serious: Yes (Hospitalization)
  Sender: FDA-Public Use
  Company Number: B0506829A

PATIENT
  Sex: Female
  Weight: 99 kg

DRUGS (3)
  1. TRASTUZUMAB [Suspect]
     Indication: BREAST CANCER
     Dates: start: 20080123
  2. DEXAMED [Concomitant]
     Dosage: 8MG SINGLE DOSE
     Route: 042
     Dates: start: 20080123, end: 20080123
  3. LAPATINIB [Suspect]
     Indication: BREAST CANCER
     Dates: start: 20080123

REACTIONS (1)
  - ACNE [None]
